FAERS Safety Report 20821177 (Version 4)
Quarter: 2022Q3

REPORT INFORMATION
  Report Type: Spontaneous
  Country: US (occurrence: US)
  Receive Date: 20220512
  Receipt Date: 20220719
  Transmission Date: 20221027
  Serious: No
  Sender: FDA-Public Use
  Company Number: US-PFIZER INC-202200677380

PATIENT
  Age: 69 Year
  Sex: Male

DRUGS (11)
  1. PAXLOVID [Suspect]
     Active Substance: NIRMATRELVIR\RITONAVIR
     Indication: COVID-19 treatment
     Dosage: 400 MG, 2X/DAY
     Dates: start: 20220505, end: 20220506
  2. BAUSCH+LOMB NASAL [Concomitant]
     Dosage: UNK
     Dates: start: 20150101
  3. ATORVASTATIN [Concomitant]
     Active Substance: ATORVASTATIN
     Dosage: UNK
     Dates: start: 20080101
  4. FINASTERIDE [Concomitant]
     Active Substance: FINASTERIDE
     Dosage: UNK
     Dates: start: 20210101
  5. LATANOPROST [Concomitant]
     Active Substance: LATANOPROST
     Indication: Glaucoma
     Dosage: UNK
     Route: 047
     Dates: start: 2008
  6. ASPIRIN [Concomitant]
     Active Substance: ASPIRIN
     Dosage: 82 MG, DAILY
  7. GLUCOSAMINE [Concomitant]
     Active Substance: GLUCOSAMINE
     Dosage: UNK, DAILY
  8. FINASTERIDE [Concomitant]
     Active Substance: FINASTERIDE
     Indication: Prostatic adenoma
     Dosage: UNK
     Route: 048
     Dates: start: 2021
  9. LIPITOR [Concomitant]
     Active Substance: ATORVASTATIN CALCIUM
     Dosage: UNK
     Route: 048
     Dates: start: 2010
  10. ALFUZOSIN [Concomitant]
     Active Substance: ALFUZOSIN
     Indication: Prostatic adenoma
     Dosage: UNK
     Route: 048
     Dates: start: 2020
  11. ALFUZOSIN [Concomitant]
     Active Substance: ALFUZOSIN
     Dosage: UNK
     Dates: start: 2020, end: 20220504

REACTIONS (5)
  - Dysgeusia [Recovered/Resolved]
  - Heart rate increased [Recovered/Resolved]
  - Myalgia [Not Recovered/Not Resolved]
  - Disease recurrence [Recovered/Resolved]
  - COVID-19 [Recovered/Resolved]

NARRATIVE: CASE EVENT DATE: 20220101
